FAERS Safety Report 9277008 (Version 1)
Quarter: 2013Q2

REPORT INFORMATION
  Report Type: Spontaneous
  Country: MY (occurrence: None)
  Receive Date: 20130501
  Receipt Date: 20130501
  Transmission Date: 20140414
  Serious: Yes (Other)
  Sender: FDA-Public Use
  Company Number: EUS-2013-00227

PATIENT
  Age: 10 Year
  Sex: Male

DRUGS (2)
  1. ERWINASE (ASPARAGINASE) [Suspect]
     Indication: LEUKAEMIA
     Dosage: X 1000
     Route: 042
  2. GRANISETRON (GRANISETRON) (GRANISETRON) [Concomitant]

REACTIONS (1)
  - Hypotension [None]
